FAERS Safety Report 10372051 (Version 2)
Quarter: 2014Q3

REPORT INFORMATION
  Report Type: Spontaneous
  Country: IT (occurrence: IT)
  Receive Date: 20140808
  Receipt Date: 20140923
  Transmission Date: 20150326
  Serious: Yes (Other)
  Sender: FDA-Public Use
  Company Number: IT-TEVA-499005ISR

PATIENT
  Age: 31 Year
  Sex: Male

DRUGS (3)
  1. BELOMICINA TEVA [Suspect]
     Active Substance: BLEOMYCIN SULFATE
     Indication: TESTICULAR NEOPLASM
     Dosage: 30 MILLIGRAM DAILY;
     Route: 030
     Dates: start: 20140312, end: 20140312
  2. ETOPOSIDE TEVA [Suspect]
     Active Substance: ETOPOSIDE
     Indication: TESTICULAR NEOPLASM
     Dosage: 180 MILLIGRAM DAILY;
     Route: 042
     Dates: start: 20140311, end: 20140312
  3. CISPLATINO TEVA ITALIA [Suspect]
     Active Substance: CISPLATIN
     Indication: TESTICULAR NEOPLASM
     Dosage: 36 MILLIGRAM DAILY;
     Route: 042
     Dates: start: 20140311, end: 20140312

REACTIONS (2)
  - Presyncope [Recovered/Resolved]
  - Hypotension [Recovered/Resolved]

NARRATIVE: CASE EVENT DATE: 20140313
